FAERS Safety Report 5466775-8 (Version None)
Quarter: 2007Q3

REPORT INFORMATION
  Report Type: 
  Country: None (occurrence: None)
  Receive Date: 20070924
  Receipt Date: 20070924
  Transmission Date: 20080115
  Serious: Yes (Life-Threatening)
  Sender: FDA-Public Use
  Company Number: None

PATIENT
  Age: 19 Year
  Sex: Male
  Weight: 87 kg

DRUGS (4)
  1. MORPHINE [Suspect]
     Indication: OXYGEN SATURATION DECREASED
     Dosage: PO
     Route: 048
     Dates: start: 20070708
  2. MORPHINE [Suspect]
     Indication: OXYGEN SATURATION DECREASED
     Dosage: 1.5 MG PCA IV
     Route: 042
     Dates: start: 20070708, end: 20070708
  3. TYLENOL W/ CODEINE NO. 3 [Concomitant]
  4. DEMEROL [Concomitant]

REACTIONS (3)
  - BRADYCARDIA [None]
  - ILL-DEFINED DISORDER [None]
  - UNEVALUABLE EVENT [None]
